FAERS Safety Report 21696414 (Version 2)
Quarter: 2022Q4

REPORT INFORMATION
  Report Type: Report from Study
  Country: US (occurrence: US)
  Receive Date: 20221207
  Receipt Date: 20221212
  Transmission Date: 20230113
  Serious: Yes (Hospitalization)
  Sender: FDA-Public Use
  Company Number: US-ABBVIE-4226072

PATIENT
  Age: 47 Year
  Sex: Female
  Weight: 93.439 kg

DRUGS (4)
  1. ORIAHNN [Suspect]
     Active Substance: ELAGOLIX SODIUM\ESTRADIOL\NORETHINDRONE
     Indication: Anaemia
     Route: 048
     Dates: start: 20221120, end: 20221128
  2. ORIAHNN [Suspect]
     Active Substance: ELAGOLIX SODIUM\ESTRADIOL\NORETHINDRONE
     Indication: Anaemia
     Route: 048
     Dates: start: 20221120, end: 20221128
  3. HYDROCORTISONE [Concomitant]
     Active Substance: HYDROCORTISONE
     Indication: Product used for unknown indication
  4. AMLODIPINE [Concomitant]
     Active Substance: AMLODIPINE BESYLATE
     Indication: Hypertension

REACTIONS (6)
  - Hospitalisation [Unknown]
  - Heavy menstrual bleeding [Unknown]
  - Vomiting [Recovered/Resolved]
  - Abnormal uterine bleeding [Not Recovered/Not Resolved]
  - Nausea [Unknown]
  - Dizziness [Recovered/Resolved]

NARRATIVE: CASE EVENT DATE: 20221128
